FAERS Safety Report 7473342-3 (Version None)
Quarter: 2011Q2

REPORT INFORMATION
  Report Type: 
  Country: None (occurrence: None)
  Receive Date: 20110511
  Receipt Date: 20110504
  Transmission Date: 20111010
  Serious: Yes (Hospitalization)
  Sender: FDA-Public Use
  Company Number: BR-US-EMD SERONO, INC.-7005291

PATIENT
  Sex: Female

DRUGS (4)
  1. ADVIL LIQUI-GELS [Concomitant]
     Indication: PRODUCT USED FOR UNKNOWN INDICATION
  2. CEFALEXINE [Concomitant]
  3. LABIRIN [Concomitant]
  4. REBIF [Suspect]
     Indication: MULTIPLE SCLEROSIS
     Route: 058
     Dates: start: 20031016

REACTIONS (4)
  - INJECTION SITE HAEMATOMA [None]
  - RADIATION SKIN INJURY [None]
  - WRONG TECHNIQUE IN DRUG USAGE PROCESS [None]
  - BREAST CANCER [None]
